FAERS Safety Report 25240160 (Version 1)
Quarter: 2025Q2

REPORT INFORMATION
  Report Type: Report from Study
  Country: MA (occurrence: MA)
  Receive Date: 20250425
  Receipt Date: 20250425
  Transmission Date: 20250717
  Serious: Yes (Life-Threatening)
  Sender: NOVARTIS
  Company Number: MA-002147023-NVSC2025MA016915

PATIENT
  Sex: Female

DRUGS (2)
  1. KISQALI [Suspect]
     Active Substance: RIBOCICLIB SUCCINATE
     Indication: Breast cancer
     Route: 048
     Dates: start: 20240703
  2. Aritrozole [Concomitant]
     Indication: Product used for unknown indication
     Route: 065

REACTIONS (6)
  - Jaundice [Unknown]
  - Liver disorder [Unknown]
  - Haemorrhoidal haemorrhage [Unknown]
  - Memory impairment [Unknown]
  - Decreased immune responsiveness [Unknown]
  - Neuralgia [Unknown]
